FAERS Safety Report 17597515 (Version 1)
Quarter: 2020Q1

REPORT INFORMATION
  Report Type: Spontaneous
  Country: US (occurrence: US)
  Receive Date: 20200326
  Receipt Date: 20200326
  Transmission Date: 20200409
  Serious: Yes (Other)
  Sender: FDA-Public Use
  Company Number: None

PATIENT
  Age: 54 Year
  Sex: Female
  Weight: 75.6 kg

DRUGS (8)
  1. VERAPAMIL [Concomitant]
     Active Substance: VERAPAMIL HYDROCHLORIDE
  2. PACLITAXEL. [Suspect]
     Active Substance: PACLITAXEL
     Indication: OVARIAN CANCER RECURRENT
     Dosage: ?          OTHER DOSE:60 MG/ M^2;OTHER FREQUENCY:DAY 1, 8, 15 OF CY;?
     Route: 042
  3. ATIVAN [Concomitant]
     Active Substance: LORAZEPAM
  4. FAMOTIDINE. [Concomitant]
     Active Substance: FAMOTIDINE
  5. PYRIDIUM [Concomitant]
     Active Substance: PHENAZOPYRIDINE
  6. COMPAZINE [Concomitant]
     Active Substance: PROCHLORPERAZINE MALEATE
  7. CARBOPLATIN. [Suspect]
     Active Substance: CARBOPLATIN
     Indication: OVARIAN CANCER RECURRENT
     Dosage: ?          OTHER DOSE:AUG 4;OTHER FREQUENCY:DAY 1 OF 28DY CYCL;?
     Route: 042
     Dates: start: 20191025, end: 20191220
  8. ZOFRAN [Concomitant]
     Active Substance: ONDANSETRON HYDROCHLORIDE

REACTIONS (2)
  - Neoplasm progression [None]
  - Adenocarcinoma pancreas [None]

NARRATIVE: CASE EVENT DATE: 20200123
